FAERS Safety Report 16599466 (Version 2)
Quarter: 2022Q4

REPORT INFORMATION
  Report Type: Report from Study
  Country: DE (occurrence: DE)
  Receive Date: 20190719
  Receipt Date: 20221025
  Transmission Date: 20230113
  Serious: Yes (Other)
  Sender: FDA-Public Use
  Company Number: DE-BRISTOL-MYERS SQUIBB COMPANY-BMS-2018-006605

PATIENT
  Age: 56 Year
  Sex: Male

DRUGS (2)
  1. NIVOLUMAB [Suspect]
     Active Substance: NIVOLUMAB
     Indication: Non-small cell lung cancer
     Dosage: 3 MILLIGRAM/KILOGRAM, Q2WK OR 240 MG
     Route: 042
     Dates: start: 20171017, end: 20181121
  2. INFLUVAC TETRA [Concomitant]
     Active Substance: INFLUENZA VIRUS VACCINE QUADRIVALENT TYPE A+B
     Indication: Prophylaxis
     Dosage: 0.5 MILLILITER
     Route: 065
     Dates: start: 20181023, end: 20181023

REACTIONS (4)
  - Autoimmune thyroid disorder [Not Recovered/Not Resolved]
  - Malignant neoplasm progression [Not Recovered/Not Resolved]
  - Pruritus [Recovered/Resolved]
  - Pleurisy [Recovering/Resolving]

NARRATIVE: CASE EVENT DATE: 20171214
